FAERS Safety Report 20541165 (Version 1)
Quarter: 2022Q1

REPORT INFORMATION
  Report Type: Spontaneous
  Country: VN (occurrence: VN)
  Receive Date: 20220302
  Receipt Date: 20220302
  Transmission Date: 20220423
  Serious: Yes (Other)
  Sender: FDA-Public Use
  Company Number: VN-JNJFOC-20211037412

PATIENT
  Age: 58 Year
  Sex: Female

DRUGS (3)
  1. DARZALEX [Suspect]
     Active Substance: DARATUMUMAB
     Indication: Plasma cell myeloma
     Dosage: DAY1,8,15,22
     Route: 042
  2. LENALIDOMIDE [Suspect]
     Active Substance: LENALIDOMIDE
     Indication: Plasma cell myeloma
     Dosage: 25MG/DAY
     Route: 065
  3. DEXAMETHASONE [Suspect]
     Active Substance: DEXAMETHASONE
     Indication: Plasma cell myeloma
     Dosage: 20 MG/DAY. DAY-1,2,8,9,15,16,22,23
     Route: 065

REACTIONS (10)
  - Thrombosis [Unknown]
  - Cerebral artery occlusion [Unknown]
  - Cerebral infarction [Unknown]
  - Pneumonia [Unknown]
  - Urinary tract infection [Unknown]
  - Anaemia [Unknown]
  - Hypersensitivity [Unknown]
  - Infusion related reaction [Unknown]
  - Fatigue [Unknown]
  - Pain [Unknown]
